FAERS Safety Report 8075872-2 (Version None)
Quarter: 2012Q1

REPORT INFORMATION
  Report Type: 
  Country: None (occurrence: None)
  Receive Date: 20120127
  Receipt Date: 20120125
  Transmission Date: 20120608
  Serious: No
  Sender: FDA-Public Use
  Company Number: US-PFIZER INC-2011300235

PATIENT
  Sex: Female
  Weight: 77.098 kg

DRUGS (9)
  1. LANTUS [Concomitant]
     Dosage: UNK
  2. NOVOLOG [Concomitant]
     Dosage: UNK
  3. TERBINAFINE [Concomitant]
     Dosage: UNK
  4. LOVASTATIN [Concomitant]
     Dosage: UNK
  5. CHANTIX [Suspect]
     Indication: SMOKING CESSATION THERAPY
     Dosage: 0.5 MG, 1X/DAY
     Route: 048
     Dates: start: 20091123
  6. LOSARTAN [Concomitant]
     Dosage: UNK
  7. METFORMIN [Concomitant]
     Dosage: UNK
  8. INSULIN [Concomitant]
     Indication: DIABETES MELLITUS
     Dosage: ^18-25 CC^ DAILY
  9. PANTOPRAZOLE [Concomitant]
     Dosage: UNK

REACTIONS (1)
  - DRUG INEFFECTIVE [None]
